FAERS Safety Report 10160250 (Version 1)
Quarter: 2014Q2

REPORT INFORMATION
  Report Type: Spontaneous
  Country: US (occurrence: US)
  Receive Date: 20140508
  Receipt Date: 20140508
  Transmission Date: 20141212
  Serious: Yes (Other)
  Sender: FDA-Public Use
  Company Number: US-PFIZER INC-2013194152

PATIENT
  Age: 71 Year
  Sex: Male

DRUGS (8)
  1. ATENOLOL [Suspect]
     Indication: ARRHYTHMIA
     Dosage: 50 DAILY IN THE AM AND 25 MG IN THE EVENING AS NEEDED
     Route: 048
  2. AMOXICILLIN [Suspect]
     Indication: PROPHYLAXIS
     Dosage: 3 COURSES OF 500 MG THREE TIMES A DAY
     Route: 065
  3. ZITHROMAX [Suspect]
     Indication: BRONCHITIS
     Dosage: UNK
     Route: 065
  4. BIAXIN [Suspect]
     Indication: BRONCHITIS
     Dosage: 500 MG, 2X/DAY
     Route: 065
     Dates: start: 20130225
  5. LEVOQUIN [Suspect]
     Indication: BRONCHITIS
     Dosage: UNK
     Route: 065
  6. ASPIRIN [Concomitant]
     Indication: PROPHYLAXIS
     Dosage: 325 MG, DAILY
     Route: 065
  7. VIAGRA [Concomitant]
     Dosage: 25 MG, AS NEEDED
     Route: 065
  8. NASOCORT [Concomitant]
     Indication: HYPERSENSITIVITY
     Dosage: 1 -2 SPRAYS,AS NEEDED
     Route: 065

REACTIONS (13)
  - Myocardial infarction [Unknown]
  - Lower respiratory tract infection [Unknown]
  - Flatulence [Unknown]
  - Blood pressure fluctuation [Unknown]
  - Arrhythmia [Unknown]
  - Body height decreased [Unknown]
  - Bronchitis [Unknown]
  - Pyrexia [Recovered/Resolved]
  - Seasonal allergy [Unknown]
  - Abdominal discomfort [Unknown]
  - Dyspnoea [Unknown]
  - Abdominal discomfort [Unknown]
  - Intentional product misuse [Unknown]
